FAERS Safety Report 14344593 (Version 7)
Quarter: 2021Q3

REPORT INFORMATION
  Report Type: Spontaneous
  Country: DE (occurrence: DE)
  Receive Date: 20180102
  Receipt Date: 20210820
  Transmission Date: 20211014
  Serious: Yes (Death, Other)
  Sender: FDA-Public Use
  Company Number: DE-MYLANLABS-2017M1083914

PATIENT
  Age: 74 Year
  Sex: Male

DRUGS (39)
  1. SIMVASTATIN. [Interacting]
     Active Substance: SIMVASTATIN
     Dosage: UNK
     Route: 048
  2. CANDECOR COMP [Interacting]
     Active Substance: CANDESARTAN CILEXETIL\HYDROCHLOROTHIAZIDE
     Indication: PRODUCT USED FOR UNKNOWN INDICATION
     Dosage: UNK
     Route: 048
  3. RISPERDAL [Interacting]
     Active Substance: RISPERIDONE
     Dosage: UNK
     Route: 048
  4. TAMSULOSIN [Interacting]
     Active Substance: TAMSULOSIN
     Dosage: UNK
     Route: 048
  5. METFORMIN [Interacting]
     Active Substance: METFORMIN HYDROCHLORIDE
     Indication: PRODUCT USED FOR UNKNOWN INDICATION
     Dosage: 500 MILLIGRAM
     Route: 048
  6. SIMVASTATIN. [Interacting]
     Active Substance: SIMVASTATIN
     Indication: PRODUCT USED FOR UNKNOWN INDICATION
     Dosage: UNK
     Route: 048
  7. APIDRA [Interacting]
     Active Substance: INSULIN GLULISINE
     Dosage: UNK
     Route: 048
  8. APIDRA [Interacting]
     Active Substance: INSULIN GLULISINE
     Dosage: UNK
     Route: 048
  9. TOREM                              /01036501/ [Interacting]
     Active Substance: TORSEMIDE
     Indication: PRODUCT USED FOR UNKNOWN INDICATION
     Dosage: UNK
     Route: 048
  10. CANDESARTAN CILEXETIL AND HYDROCHLOROTHIAZIDE [Interacting]
     Active Substance: CANDESARTAN CILEXETIL\HYDROCHLOROTHIAZIDE
     Indication: PRODUCT USED FOR UNKNOWN INDICATION
     Dosage: UNK
     Route: 048
  11. BISOPROLOL [Interacting]
     Active Substance: BISOPROLOL
     Indication: PRODUCT USED FOR UNKNOWN INDICATION
     Dosage: UNK
     Route: 048
  12. FALITHROM [Interacting]
     Active Substance: PHENPROCOUMON
     Indication: PRODUCT USED FOR UNKNOWN INDICATION
     Dosage: UNK
     Route: 048
  13. RISPERDAL [Interacting]
     Active Substance: RISPERIDONE
     Indication: PRODUCT USED FOR UNKNOWN INDICATION
     Dosage: UNK
     Route: 048
  14. ALLO [Interacting]
     Active Substance: ALLOPURINOL
     Indication: PRODUCT USED FOR UNKNOWN INDICATION
     Dosage: UNK
     Route: 048
  15. LANTUS [Interacting]
     Active Substance: INSULIN GLARGINE
     Indication: PRODUCT USED FOR UNKNOWN INDICATION
     Dosage: UNK
     Route: 048
  16. LANTUS [Interacting]
     Active Substance: INSULIN GLARGINE
     Dosage: UNK
     Route: 048
  17. QUETIAPINE FUMARATE. [Interacting]
     Active Substance: QUETIAPINE FUMARATE
     Dosage: UNK
  18. SIMVASTATIN. [Interacting]
     Active Substance: SIMVASTATIN
     Dosage: UNK
     Route: 048
  19. SEROQUEL [Interacting]
     Active Substance: QUETIAPINE FUMARATE
     Dosage: UNK
     Route: 048
  20. LEVOMEPROMAZIN                     /00038601/ [Interacting]
     Active Substance: LEVOMEPROMAZINE
     Indication: PRODUCT USED FOR UNKNOWN INDICATION
     Dosage: UNK
     Route: 048
  21. ALLO [Interacting]
     Active Substance: ALLOPURINOL
     Dosage: UNK
     Route: 048
  22. LANTUS [Interacting]
     Active Substance: INSULIN GLARGINE
     Dosage: UNK
     Route: 048
  23. LANTUS [Interacting]
     Active Substance: INSULIN GLARGINE
     Dosage: UNK
     Route: 048
  24. APIDRA [Interacting]
     Active Substance: INSULIN GLULISINE
     Dosage: UNK
     Route: 048
  25. QUETIAPINE FUMARATE. [Interacting]
     Active Substance: QUETIAPINE FUMARATE
     Indication: PRODUCT USED FOR UNKNOWN INDICATION
     Dosage: UNK
     Route: 048
  26. QUETIAPINE FUMARATE. [Interacting]
     Active Substance: QUETIAPINE FUMARATE
     Dosage: UNK
     Route: 048
  27. TOREM                              /01036501/ [Interacting]
     Active Substance: TORSEMIDE
     Dosage: UNK
     Route: 048
  28. SIMVASTATIN. [Interacting]
     Active Substance: SIMVASTATIN
     Dosage: UNK
     Route: 048
  29. DONEPEZIL. [Interacting]
     Active Substance: DONEPEZIL
     Dosage: 500 MILLIGRAM
     Route: 048
  30. SEROQUEL [Interacting]
     Active Substance: QUETIAPINE FUMARATE
     Indication: PRODUCT USED FOR UNKNOWN INDICATION
     Dosage: UNK
     Route: 048
  31. APIDRA [Interacting]
     Active Substance: INSULIN GLULISINE
     Dosage: UNK
     Route: 048
  32. QUETIAPINE FUMARATE. [Interacting]
     Active Substance: QUETIAPINE FUMARATE
     Dosage: UNK
     Route: 048
  33. TAMSULOSIN [Suspect]
     Active Substance: TAMSULOSIN
     Indication: PRODUCT USED FOR UNKNOWN INDICATION
     Dosage: UNK
     Route: 048
  34. SIMVASTATIN. [Interacting]
     Active Substance: SIMVASTATIN
     Dosage: UNK
     Route: 048
  35. DONEPEZIL. [Interacting]
     Active Substance: DONEPEZIL
     Indication: PRODUCT USED FOR UNKNOWN INDICATION
     Dosage: UNK
     Route: 048
  36. LEVOMEPROMAZIN                     /00038601/ [Interacting]
     Active Substance: LEVOMEPROMAZINE
     Dosage: 500 MILLIGRAM
     Route: 048
  37. LANTUS [Interacting]
     Active Substance: INSULIN GLARGINE
     Dosage: UNK
     Route: 048
  38. APIDRA [Interacting]
     Active Substance: INSULIN GLULISINE
     Indication: PRODUCT USED FOR UNKNOWN INDICATION
     Dosage: UNK
     Route: 048
  39. QUETIAPINE FUMARATE. [Interacting]
     Active Substance: QUETIAPINE FUMARATE
     Dosage: UNK
     Route: 048

REACTIONS (20)
  - Adverse drug reaction [Unknown]
  - Confusional state [Unknown]
  - Cardiovascular disorder [Unknown]
  - Dizziness [Unknown]
  - Hyperhidrosis [Unknown]
  - Balance disorder [Unknown]
  - Fall [Unknown]
  - Gastric haemorrhage [Unknown]
  - Drug interaction [Unknown]
  - Urinary incontinence [Unknown]
  - Contraindicated product administered [Unknown]
  - Blood glucose abnormal [Unknown]
  - Blood glucose fluctuation [Unknown]
  - Renal failure [Unknown]
  - Cognitive disorder [Unknown]
  - Intestinal haemorrhage [Unknown]
  - Haematoma [Unknown]
  - Death [Fatal]
  - Gastrointestinal haemorrhage [Unknown]
  - Contusion [Unknown]

NARRATIVE: CASE EVENT DATE: 2017
